FAERS Safety Report 12325205 (Version 3)
Quarter: 2016Q4

REPORT INFORMATION
  Report Type: Spontaneous
  Country: US (occurrence: US)
  Receive Date: 20160502
  Receipt Date: 20161114
  Transmission Date: 20170207
  Serious: Yes (Hospitalization, Other)
  Sender: FDA-Public Use
  Company Number: US-ELI_LILLY_AND_COMPANY-US201604008051

PATIENT
  Sex: Female

DRUGS (3)
  1. HUMALOG MIX75/25 [Suspect]
     Active Substance: INSULIN LISPRO
     Indication: TYPE 2 DIABETES MELLITUS
     Dosage: FOUR TIMES A DAY
     Route: 065
     Dates: start: 201601
  2. HUMALOG MIX75/25 [Suspect]
     Active Substance: INSULIN LISPRO
     Dosage: FOUR TIMES A DAY
     Route: 065
  3. HUMALOG MIX75/25 [Suspect]
     Active Substance: INSULIN LISPRO
     Dosage: FOUR TIMES A DAY
     Route: 065

REACTIONS (12)
  - Uterine leiomyoma [Unknown]
  - Limb discomfort [Recovered/Resolved]
  - Discomfort [Unknown]
  - Sensory loss [Unknown]
  - Injection site pain [Unknown]
  - Musculoskeletal discomfort [Recovered/Resolved]
  - Pain in extremity [Unknown]
  - Malaise [Unknown]
  - Incorrect dose administered [Unknown]
  - Memory impairment [Unknown]
  - Neoplasm malignant [Unknown]
  - Back pain [Unknown]

NARRATIVE: CASE EVENT DATE: 20160418
